FAERS Safety Report 9608925 (Version 1)
Quarter: 2013Q4

REPORT INFORMATION
  Report Type: Spontaneous
  Country: US (occurrence: US)
  Receive Date: 20131009
  Receipt Date: 20131009
  Transmission Date: 20140711
  Serious: No
  Sender: FDA-Public Use
  Company Number: US-009507513-1310USA003801

PATIENT
  Sex: Female

DRUGS (1)
  1. TINACTIN SPRAY POWDER [Suspect]
     Indication: PRODUCT USED FOR UNKNOWN INDICATION
     Dosage: UNK, UNKNOWN
     Route: 061
     Dates: start: 20130924

REACTIONS (4)
  - Erythema [Unknown]
  - Pruritus [Unknown]
  - Circumstance or information capable of leading to medication error [Unknown]
  - Product lot number issue [Unknown]
